FAERS Safety Report 6262486-X (Version None)
Quarter: 2009Q3

REPORT INFORMATION
  Report Type: 
  Country: None (occurrence: None)
  Receive Date: 20090709
  Receipt Date: 20090625
  Transmission Date: 20100115
  Serious: Yes (Life-Threatening, Hospitalization, Disabling, Other)
  Sender: FDA-Public Use
  Company Number: GB-MYLANLABS-2009S1011416

PATIENT
  Age: 57 Year
  Sex: Female

DRUGS (10)
  1. AZATHIOPRINE [Suspect]
     Indication: CROHN'S DISEASE
  2. TRUVADA /01398801/ [Suspect]
     Indication: HIV INFECTION
     Dates: start: 20020101
  3. ACYCLOVIR [Concomitant]
     Indication: DRUG USE FOR UNKNOWN INDICATION
     Route: 042
  4. BUSCOPAN [Concomitant]
     Indication: CROHN'S DISEASE
     Route: 048
  5. EFAVIRENZ [Concomitant]
     Indication: HIV INFECTION
     Route: 048
  6. HORMONE THERAPY [Concomitant]
     Indication: DRUG USE FOR UNKNOWN INDICATION
  7. LOPERAMIDE HYDROCHLORIDE [Concomitant]
     Indication: CROHN'S DISEASE
     Route: 048
  8. MORPHINE SULFATE [Concomitant]
     Indication: CROHN'S DISEASE
     Route: 048
  9. OMEPRAZOLE [Concomitant]
     Indication: CROHN'S DISEASE
     Route: 048
  10. PREDNISOLONE [Concomitant]
     Indication: OPTIC NEURITIS
     Route: 048

REACTIONS (1)
  - ENCEPHALITIS [None]
